FAERS Safety Report 5683057-X (Version None)
Quarter: 2008Q1

REPORT INFORMATION
  Report Type: 
  Country: None (occurrence: None)
  Receive Date: 20080327
  Receipt Date: 20080317
  Transmission Date: 20080703
  Serious: Yes (Other)
  Sender: FDA-Public Use
  Company Number: PHEH2006US07279

PATIENT
  Age: 42 Year
  Sex: Female

DRUGS (19)
  1. AREDIA [Suspect]
     Indication: METASTASES TO BONE MARROW
     Dosage: UNK, QMO
     Route: 042
     Dates: start: 20001001
  2. ZOMETA [Suspect]
     Indication: METASTASES TO BONE
     Dosage: 4 MG, QMO
     Route: 042
  3. EPIRUBICIN [Concomitant]
     Indication: BREAST CANCER METASTATIC
     Dosage: UNK, UNK
  4. CYTOXAN [Concomitant]
     Indication: BREAST CANCER METASTATIC
     Dosage: UNK, UNK
  5. TAMOXIFEN CITRATE [Concomitant]
     Indication: BREAST CANCER METASTATIC
     Dates: start: 20001001
  6. NAVELBINE [Concomitant]
     Dosage: UNK, UNK
  7. METHOTREXATE [Concomitant]
     Indication: BREAST CANCER METASTATIC
     Dosage: UNK, UNK
  8. TAXOL [Concomitant]
     Indication: BREAST CANCER METASTATIC
     Dates: start: 20001206
  9. RADIATION THERAPY [Concomitant]
     Dosage: ^10 TREATMENTS FOR TOTAL 3000 GY^
     Dates: start: 20031008
  10. FASLODEX [Concomitant]
     Dosage: UNK, UNK
  11. IRESSA [Concomitant]
     Dosage: UNK, UNK
  12. VASOTEC [Concomitant]
     Dosage: UNK, UNK
  13. ABRAXANE [Concomitant]
     Dosage: UNK, UNK
  14. AVASTIN [Concomitant]
     Dosage: UNK, UNK
  15. LEXAPRO [Concomitant]
     Indication: DEPRESSION
     Dosage: UNK, UNK
  16. XELODA [Concomitant]
     Indication: BREAST CANCER METASTATIC
     Dosage: UNK, UNK
  17. GEMZAR [Concomitant]
     Dosage: UNK, UNK
  18. DILAUDID [Concomitant]
     Indication: PAIN MANAGEMENT
     Dosage: UNK, PRN
     Route: 058
  19. ACTIQ [Concomitant]
     Dosage: UNK, UNK

REACTIONS (27)
  - ABDOMINAL MASS [None]
  - ANXIETY [None]
  - BONE DISORDER [None]
  - BONE PAIN [None]
  - CENTRAL VENOUS CATHETERISATION [None]
  - COLECTOMY [None]
  - COLONIC OBSTRUCTION [None]
  - COLOSTOMY [None]
  - DECREASED INTEREST [None]
  - DENTAL CARIES [None]
  - DENTAL TREATMENT [None]
  - DIARRHOEA [None]
  - EXPLORATIVE LAPAROTOMY [None]
  - FIBROCYSTIC BREAST DISEASE [None]
  - GENERAL PHYSICAL HEALTH DETERIORATION [None]
  - INFLAMMATION [None]
  - INSOMNIA [None]
  - JAW DISORDER [None]
  - LAPAROSCOPY [None]
  - NAUSEA [None]
  - OSTEOMYELITIS [None]
  - OSTEONECROSIS [None]
  - OVARIAN MASS [None]
  - PAIN [None]
  - PAIN IN JAW [None]
  - TENDERNESS [None]
  - TOOTH EXTRACTION [None]
